FAERS Safety Report 4501761-3 (Version None)
Quarter: 2004Q4

REPORT INFORMATION
  Report Type: 
  Country: None (occurrence: None)
  Receive Date: 20040928
  Receipt Date: 20040716
  Transmission Date: 20050328
  Serious: No
  Sender: FDA-Public Use
  Company Number: 03P-163-0226791-00

PATIENT
  Age: 74 Year
  Sex: Female
  Weight: 69.8539 kg

DRUGS (10)
  1. HUMIRA [Suspect]
     Indication: RHEUMATOID ARTHRITIS
     Dosage: 40 MG, 1 IN 2 WK, SUBCUTANEOUS
     Route: 058
     Dates: start: 20030529, end: 20030724
  2. METHOTREXATE [Concomitant]
  3. CELECOXIB [Concomitant]
  4. FOLIC ACID [Concomitant]
  5. ESOMEPRAZOLE [Concomitant]
  6. GLIPIZIDE [Concomitant]
  7. MULTIVITAMIN [Concomitant]
  8. LEXAPRO [Concomitant]
  9. ACETYLSALICYLIC ACID [Concomitant]
  10. LIBRIUM [Concomitant]

REACTIONS (1)
  - RASH [None]
